FAERS Safety Report 6571928-1 (Version None)
Quarter: 2010Q1

REPORT INFORMATION
  Report Type: 
  Country: None (occurrence: None)
  Receive Date: 20100205
  Receipt Date: 20100127
  Transmission Date: 20100710
  Serious: Yes (Hospitalization)
  Sender: FDA-Public Use
  Company Number: IT-ROCHE-682118

PATIENT
  Sex: Male

DRUGS (4)
  1. PEGASYS [Suspect]
     Indication: HEPATITIS C
     Dosage: DOSE REPORTED AS 180 MICROGRAM.
     Route: 058
     Dates: start: 20091014, end: 20091212
  2. COPEGUS [Suspect]
     Indication: HEPATITIS C
     Route: 048
     Dates: start: 20091014, end: 20091212
  3. DIAMICRON [Concomitant]
     Dosage: FREQUENCY REPORTED AS UNKNOWN.
     Route: 048
     Dates: start: 20050201, end: 20100119
  4. TRIATEC [Concomitant]
     Dosage: FREQUENCY REPORTED AS UNKNOWN.
     Route: 048
     Dates: start: 20050201, end: 20100119

REACTIONS (4)
  - COUGH [None]
  - DYSPHONIA [None]
  - DYSPNOEA [None]
  - MYALGIA [None]
